FAERS Safety Report 24611728 (Version 1)
Quarter: 2024Q4

REPORT INFORMATION
  Report Type: Spontaneous
  Country: US (occurrence: US)
  Receive Date: 20241113
  Receipt Date: 20241113
  Transmission Date: 20250115
  Serious: Yes (Other)
  Sender: ALEXION PHARMACEUTICALS
  Company Number: US-AstraZeneca-CH-00741356A

PATIENT

DRUGS (8)
  1. CRESTOR [Suspect]
     Active Substance: ROSUVASTATIN CALCIUM
  2. CRESTOR [Suspect]
     Active Substance: ROSUVASTATIN CALCIUM
  3. CRESTOR [Suspect]
     Active Substance: ROSUVASTATIN CALCIUM
  4. CRESTOR [Suspect]
     Active Substance: ROSUVASTATIN CALCIUM
  5. EZETIMIBE [Suspect]
     Active Substance: EZETIMIBE
     Route: 065
  6. EZETIMIBE [Suspect]
     Active Substance: EZETIMIBE
  7. EZETIMIBE [Suspect]
     Active Substance: EZETIMIBE
     Route: 065
  8. EZETIMIBE [Suspect]
     Active Substance: EZETIMIBE

REACTIONS (1)
  - Neuropathy peripheral [Unknown]
